FAERS Safety Report 9130762 (Version 1)
Quarter: 2013Q1

REPORT INFORMATION
  Report Type: Spontaneous
  Country: EC (occurrence: EC)
  Receive Date: 20130301
  Receipt Date: 20130301
  Transmission Date: 20140127
  Serious: Yes (Other)
  Sender: FDA-Public Use
  Company Number: PHHY2013EC019423

PATIENT
  Age: 28 Year
  Sex: Male

DRUGS (2)
  1. GLIVEC [Suspect]
     Indication: CHRONIC MYELOID LEUKAEMIA
     Dosage: 400 MG, QD
     Route: 048
     Dates: start: 20080121, end: 20130221
  2. GLIVEC [Suspect]
     Dosage: 600 MG, QD
     Dates: start: 20130222

REACTIONS (1)
  - White blood cell count increased [Unknown]
